FAERS Safety Report 13747151 (Version 10)
Quarter: 2020Q3

REPORT INFORMATION
  Report Type: Spontaneous
  Country: JP (occurrence: JP)
  Receive Date: 20170712
  Receipt Date: 20200706
  Transmission Date: 20201102
  Serious: Yes (Death, Hospitalization, Other)
  Sender: FDA-Public Use
  Company Number: JP-BRISTOL-MYERS SQUIBB COMPANY-BMS-2017-010765

PATIENT
  Age: 69 Year
  Sex: Male
  Weight: 62 kg

DRUGS (1)
  1. OPDIVO [Suspect]
     Active Substance: NIVOLUMAB
     Indication: NON-SMALL CELL LUNG CANCER RECURRENT
     Dosage: 180 MG, UNK
     Route: 041
     Dates: start: 20161109, end: 20170119

REACTIONS (6)
  - Pneumocystis jirovecii pneumonia [Unknown]
  - Malignant neoplasm progression [Fatal]
  - Cytomegalovirus enterocolitis [Recovered/Resolved]
  - Pneumothorax [Fatal]
  - Immune-mediated enterocolitis [Unknown]
  - Renal impairment [Unknown]

NARRATIVE: CASE EVENT DATE: 2017
